FAERS Safety Report 5156826-2 (Version None)
Quarter: 2006Q4

REPORT INFORMATION
  Report Type: 
  Country: None (occurrence: None)
  Receive Date: 20061115
  Receipt Date: 20061101
  Transmission Date: 20070319
  Serious: Yes (Hospitalization)
  Sender: FDA-Public Use
  Company Number: TCI2006A04921

PATIENT
  Age: 53 Year
  Sex: Male

DRUGS (2)
  1. ACTOS [Suspect]
     Indication: DIABETES MELLITUS NON-INSULIN-DEPENDENT
     Dosage: 30 MG (30 MG, 1 IN 1 D) PER ORAL
     Route: 048
     Dates: start: 20051006
  2. KAD-1229   (MITIGLINIDE CALCIUM HYDRATE) [Suspect]
     Indication: DIABETES MELLITUS NON-INSULIN-DEPENDENT
     Dosage: 60 MG (20 MG, 3 IN 1 D) PER ORAL
     Route: 048
     Dates: start: 20060202

REACTIONS (5)
  - CATARACT [None]
  - CONDITION AGGRAVATED [None]
  - DIABETIC RETINOPATHY [None]
  - VISUAL ACUITY REDUCED [None]
  - VITREOUS DETACHMENT [None]
